FAERS Safety Report 8189212-1 (Version None)
Quarter: 2012Q1

REPORT INFORMATION
  Report Type: 
  Country: None (occurrence: None)
  Receive Date: 20120306
  Receipt Date: 20120306
  Transmission Date: 20120608
  Serious: Yes (Hospitalization)
  Sender: FDA-Public Use
  Company Number: None

PATIENT
  Age: 67 Year
  Sex: Male
  Weight: 68.0396 kg

DRUGS (1)
  1. AZOR [Suspect]
     Indication: HYPERTENSION
     Dosage: TAKE 1 TABLET DAILY
     Dates: start: 20120202

REACTIONS (2)
  - DEHYDRATION [None]
  - DIARRHOEA [None]
